FAERS Safety Report 16657807 (Version 1)
Quarter: 2019Q3

REPORT INFORMATION
  Report Type: Spontaneous
  Country: NL (occurrence: ES)
  Receive Date: 20190801
  Receipt Date: 20190801
  Transmission Date: 20191004
  Serious: Yes (Other)
  Sender: FDA-Public Use
  Company Number: ES-FRESENIUS KABI-FK201908327

PATIENT
  Age: 83 Year
  Sex: Female
  Weight: 66 kg

DRUGS (1)
  1. LINEZOLID 2 MG/ML [Suspect]
     Active Substance: LINEZOLID
     Indication: INFECTION
     Dosage: 600 MG/12 HORAS
     Route: 041
     Dates: start: 20190505, end: 20190513

REACTIONS (1)
  - Neutropenia [Recovered/Resolved]

NARRATIVE: CASE EVENT DATE: 20190513
